FAERS Safety Report 8070659-9 (Version None)
Quarter: 2012Q1

REPORT INFORMATION
  Report Type: 
  Country: None (occurrence: None)
  Receive Date: 20120125
  Receipt Date: 20120119
  Transmission Date: 20120608
  Serious: Yes (Hospitalization, Other)
  Sender: FDA-Public Use
  Company Number: PHHY2011US57584

PATIENT
  Sex: Female
  Weight: 61.23 kg

DRUGS (10)
  1. ACTONEL [Concomitant]
  2. FOLIC ACID [Concomitant]
  3. HYDROCHLOROTHIAZIDE [Concomitant]
  4. NORVASC [Concomitant]
  5. EXJADE [Suspect]
     Indication: SERUM FERRITIN INCREASED
     Dosage: 2000 MG, DAILY
     Route: 048
     Dates: start: 20110426
  6. OMEPRAZOLE [Concomitant]
  7. ZOCOR [Concomitant]
  8. EXJADE [Suspect]
     Indication: SICKLE CELL ANAEMIA
     Dosage: 1000 MG, DAILY
     Route: 048
     Dates: start: 20110301
  9. EXJADE [Suspect]
     Dosage: 1000 MG, DAILY
     Route: 048
  10. FLEXERIL [Concomitant]

REACTIONS (2)
  - CHEST PAIN [None]
  - RENAL IMPAIRMENT [None]
